FAERS Safety Report 24362960 (Version 7)
Quarter: 2025Q4

REPORT INFORMATION
  Report Type: Spontaneous
  Country: US (occurrence: US)
  Receive Date: 20240925
  Receipt Date: 20251210
  Transmission Date: 20260118
  Serious: Yes (Other)
  Sender: PFIZER
  Company Number: US-PFIZER INC-PV202400035794

PATIENT
  Age: 83 Year
  Sex: Female

DRUGS (1)
  1. IBRANCE [Suspect]
     Active Substance: PALBOCICLIB
     Indication: Lymphoma
     Dosage: DAILY WITH OR WITHOUT FOOD FOR 21 DAYS AND 7 DAYS OFF
     Route: 048
     Dates: start: 20240119

REACTIONS (5)
  - Blindness [Unknown]
  - Visual impairment [Unknown]
  - Dry eye [Not Recovered/Not Resolved]
  - Off label use [Unknown]
  - Drug effective for unapproved indication [Unknown]
